FAERS Safety Report 9122568 (Version 1)
Quarter: 2012Q4

REPORT INFORMATION
  Report Type: Spontaneous
  Country: DE (occurrence: None)
  Receive Date: 20120910
  Receipt Date: 20120910
  Transmission Date: 20130627
  Serious: Yes (Hospitalization)
  Sender: FDA-Public Use
  Company Number: NGX_01215_2012

PATIENT
  Age: 69 Year
  Sex: Female
  Weight: 88.9 kg

DRUGS (15)
  1. QUTENZA [Suspect]
     Dosage: (DF)
     Dates: start: 20120514, end: 20120709
  2. LYRICA [Concomitant]
  3. NOVAMINSULFON [Concomitant]
  4. CYMBALTA [Concomitant]
  5. SEROQUEL [Concomitant]
  6. METFORMIN [Concomitant]
  7. PLIBEN [Concomitant]
  8. ONGLYZA [Concomitant]
  9. ASS [Concomitant]
  10. ZOPICLONE [Concomitant]
  11. DIPIPERON [Concomitant]
  12. L-THYROXIN [Concomitant]
  13. DICLAC /00372302/ [Concomitant]
  14. OMEPRAZOL /00661201/ [Concomitant]
  15. VISTIL [Concomitant]

REACTIONS (2)
  - Depression [None]
  - Condition aggravated [None]
